FAERS Safety Report 22325601 (Version 1)
Quarter: 2023Q2

REPORT INFORMATION
  Report Type: Spontaneous
  Country: TW (occurrence: TW)
  Receive Date: 20230516
  Receipt Date: 20230516
  Transmission Date: 20230721
  Serious: Yes (Death, Other)
  Sender: FDA-Public Use
  Company Number: TW-AMGEN-TWNSP2023080721

PATIENT

DRUGS (3)
  1. CARFILZOMIB [Suspect]
     Active Substance: CARFILZOMIB
     Indication: Plasma cell myeloma
     Dosage: UNK
     Route: 065
  2. BORTEZOMIB [Concomitant]
     Active Substance: BORTEZOMIB
     Indication: Plasma cell myeloma
     Dosage: UNK
     Route: 065
  3. IXAZOMIB [Concomitant]
     Active Substance: IXAZOMIB
     Indication: Plasma cell myeloma
     Dosage: UNK
     Route: 065

REACTIONS (9)
  - Death [Fatal]
  - Haemoglobin abnormal [Fatal]
  - Beta 2 microglobulin abnormal [Fatal]
  - Platelet count abnormal [Fatal]
  - Blood albumin abnormal [Fatal]
  - Blood calcium abnormal [Fatal]
  - Blood creatinine abnormal [Fatal]
  - Blood lactate dehydrogenase abnormal [Fatal]
  - Herpes zoster [Unknown]
